FAERS Safety Report 5965557-8 (Version None)
Quarter: 2008Q4

REPORT INFORMATION
  Report Type: 
  Country: None (occurrence: None)
  Receive Date: 20081125
  Receipt Date: 20080325
  Transmission Date: 20090506
  Serious: Yes (Other)
  Sender: FDA-Public Use
  Company Number: US-AMGEN-KDL261995

PATIENT
  Sex: Female
  Weight: 109 kg

DRUGS (23)
  1. ENBREL [Suspect]
     Indication: RHEUMATOID ARTHRITIS
     Route: 058
     Dates: start: 20070101
  2. ENBREL [Suspect]
     Indication: DRUG USE FOR UNKNOWN INDICATION
  3. PLAQUENIL [Concomitant]
     Route: 048
     Dates: start: 20050901
  4. CYMBALTA [Concomitant]
  5. BONIVA [Concomitant]
  6. ACTOS [Concomitant]
     Route: 048
  7. METAGLIP [Concomitant]
     Route: 048
  8. ZOCOR [Concomitant]
     Route: 048
  9. NOVOLOG [Concomitant]
     Route: 058
  10. COMPAZINE [Concomitant]
     Route: 048
  11. DARVOCET-N 100 [Concomitant]
     Route: 048
  12. INSULIN [Concomitant]
  13. ENALAPRIL MALEATE [Concomitant]
     Route: 048
  14. RESTORIL [Concomitant]
     Route: 048
  15. ALTACE [Concomitant]
     Route: 048
  16. CALCIUM [Concomitant]
     Route: 048
  17. ASPIRIN [Concomitant]
  18. PAMELOR [Concomitant]
     Route: 048
  19. ZANTAC [Concomitant]
     Route: 048
  20. LEXAPRO [Concomitant]
     Route: 048
     Dates: start: 20070928
  21. SENOKOT [Concomitant]
  22. PREDNISONE TAB [Concomitant]
     Dates: end: 20070301
  23. BISPHOSPHONATE [Concomitant]
     Route: 048

REACTIONS (27)
  - ABDOMINAL DISTENSION [None]
  - ALOPECIA [None]
  - AMNESIA [None]
  - CONSTIPATION [None]
  - DEPRESSION [None]
  - DRUG INEFFECTIVE [None]
  - DRY MOUTH [None]
  - DRY SKIN [None]
  - DYSPNOEA [None]
  - EYE IRRITATION [None]
  - GOUT [None]
  - HEADACHE [None]
  - HYPOAESTHESIA [None]
  - INJECTION SITE ERYTHEMA [None]
  - INJECTION SITE PRURITUS [None]
  - INJECTION SITE SWELLING [None]
  - LACRIMATION INCREASED [None]
  - OCULAR HYPERAEMIA [None]
  - OSTEOARTHRITIS [None]
  - OSTEOPENIA [None]
  - PAIN [None]
  - PARAESTHESIA [None]
  - RHEUMATOID ARTHRITIS [None]
  - TEMPORAL ARTERITIS [None]
  - VISION BLURRED [None]
  - VISUAL ACUITY REDUCED [None]
  - WHEEZING [None]
